FAERS Safety Report 11163353 (Version 1)
Quarter: 2015Q2

REPORT INFORMATION
  Report Type: Spontaneous
  Country: US (occurrence: None)
  Receive Date: 20150603
  Receipt Date: 20150603
  Transmission Date: 20150821
  Serious: Yes (Hospitalization)
  Sender: FDA-Public Use
  Company Number: None

PATIENT
  Age: 65 Year
  Sex: Male
  Weight: 87.3 kg

DRUGS (17)
  1. HARVONI [Suspect]
     Active Substance: LEDIPASVIR\SOFOSBUVIR
     Indication: HEPATITIS C
     Route: 048
     Dates: start: 20150213, end: 20150507
  2. CELLCEPT [Concomitant]
     Active Substance: MYCOPHENOLATE MOFETIL\MYCOPHENOLATE MOFETIL HYDROCHLORIDE
  3. TRAZODONE [Concomitant]
     Active Substance: TRAZODONE HYDROCHLORIDE
  4. EVEROLIMUS [Concomitant]
     Active Substance: EVEROLIMUS
  5. ALLOPURINO [Concomitant]
     Active Substance: ALLOPURINOL
  6. BACLOFEN. [Concomitant]
     Active Substance: BACLOFEN
  7. LANTUS [Concomitant]
     Active Substance: INSULIN GLARGINE
  8. OMEPRAZOLE. [Concomitant]
     Active Substance: OMEPRAZOLE
  9. CALCIUM CARBONATE. [Concomitant]
     Active Substance: CALCIUM CARBONATE
  10. CITALOPRAM [Concomitant]
     Active Substance: CITALOPRAM HYDROBROMIDE
  11. MAGONATE [Concomitant]
     Active Substance: MAGNESIUM CARBONATE
  12. ATENOLOL. [Concomitant]
     Active Substance: ATENOLOL
  13. BACTRIM [Concomitant]
     Active Substance: SULFAMETHOXAZOLE\TRIMETHOPRIM
  14. FERROUS SULFATE [Concomitant]
     Active Substance: FERROUS SULFATE\FERROUS SULFATE, DRIED
  15. NOVOLOG [Concomitant]
     Active Substance: INSULIN ASPART
  16. PREDNISONE. [Concomitant]
     Active Substance: PREDNISONE
  17. RIBAVIRIN. [Suspect]
     Active Substance: RIBAVIRIN
     Indication: HEPATITIS C
     Route: 048
     Dates: start: 20150213, end: 20150507

REACTIONS (2)
  - Sepsis [None]
  - Pyrexia [None]

NARRATIVE: CASE EVENT DATE: 20150316
